FAERS Safety Report 6772299-8 (Version None)
Quarter: 2010Q2

REPORT INFORMATION
  Report Type: 
  Country: None (occurrence: None)
  Receive Date: 20100616
  Receipt Date: 20091012
  Transmission Date: 20101027
  Serious: No
  Sender: FDA-Public Use
  Company Number: US-ASTRAZENECA-2009SE19596

PATIENT
  Age: 76 Year
  Sex: Female
  Weight: 61.2 kg

DRUGS (4)
  1. PULMICORT FLEXHALER [Suspect]
     Indication: ASTHMA
     Dosage: 180 UG BID
     Route: 055
     Dates: start: 20070101
  2. ALBUTEROL [Concomitant]
  3. SUDAFED S.A. [Concomitant]
  4. CALCIUM CARBONATE [Concomitant]

REACTIONS (2)
  - DRUG INEFFECTIVE [None]
  - DYSPNOEA [None]
